FAERS Safety Report 26113166 (Version 1)
Quarter: 2025Q4

REPORT INFORMATION
  Report Type: Spontaneous
  Country: US (occurrence: US)
  Receive Date: 20251202
  Receipt Date: 20251202
  Transmission Date: 20260119
  Serious: No
  Sender: NOVARTIS
  Company Number: US-002147023-NVSC2025US184238

PATIENT
  Age: 36 Year
  Sex: Female

DRUGS (5)
  1. CLOFAZIMINE [Suspect]
     Active Substance: CLOFAZIMINE
     Indication: Product used for unknown indication
     Dosage: UNK
     Route: 065
  2. NUZYRA [Suspect]
     Active Substance: OMADACYCLINE
     Indication: Mycobacterium abscessus infection
     Dosage: 300 MG, QD (NO LOADING DOSE)
     Route: 048
  3. NUZYRA [Suspect]
     Active Substance: OMADACYCLINE
     Dosage: 150 MG, QD (15 DAYS DURATION)
     Route: 048
  4. NUZYRA [Suspect]
     Active Substance: OMADACYCLINE
     Dosage: 300 MG, QD (DURATION 1 MONTH)
     Route: 048
  5. NUZYRA [Suspect]
     Active Substance: OMADACYCLINE
     Dosage: 150 MG, QD
     Route: 048

REACTIONS (4)
  - Alanine aminotransferase increased [Recovered/Resolved]
  - Aspartate aminotransferase increased [Recovered/Resolved]
  - Incorrect product administration duration [Unknown]
  - Off label use [Unknown]
